FAERS Safety Report 8330122-4 (Version None)
Quarter: 2012Q2

REPORT INFORMATION
  Report Type: 
  Country: None (occurrence: None)
  Receive Date: 20120502
  Receipt Date: 20120418
  Transmission Date: 20120825
  Serious: Yes (Other)
  Sender: FDA-Public Use
  Company Number: CN-JNJFOC-20110705422

PATIENT
  Sex: Female
  Weight: 50 kg

DRUGS (3)
  1. SPORANOX [Suspect]
     Indication: TINEA INFECTION
     Route: 048
     Dates: start: 20101213, end: 20101220
  2. ALL OTHER THERAPEUTIC PRODUCT [Concomitant]
     Indication: GENITAL DISORDER FEMALE
     Route: 065
  3. CEPHRADINE [Concomitant]
     Indication: GENITAL DISORDER FEMALE
     Route: 065

REACTIONS (3)
  - ERUCTATION [None]
  - CHOLECYSTITIS [None]
  - ABDOMINAL PAIN [None]
